FAERS Safety Report 22010870 (Version 5)
Quarter: 2023Q4

REPORT INFORMATION
  Report Type: Spontaneous
  Country: US (occurrence: US)
  Receive Date: 20230220
  Receipt Date: 20231022
  Transmission Date: 20240110
  Serious: No
  Sender: FDA-Public Use
  Company Number: US-SA-SAC20230216000279

PATIENT
  Age: 7 Year
  Sex: Female

DRUGS (2)
  1. DUPIXENT [Suspect]
     Active Substance: DUPILUMAB
     Indication: Dermatitis atopic
     Dosage: 300 MG, QOW
     Route: 058
     Dates: start: 20221021
  2. DUPIXENT [Suspect]
     Active Substance: DUPILUMAB
     Dosage: 200 MG, QOW
     Route: 058
     Dates: start: 20230221

REACTIONS (6)
  - Dermatitis atopic [Not Recovered/Not Resolved]
  - Rash [Not Recovered/Not Resolved]
  - Sleep disorder [Not Recovered/Not Resolved]
  - Drug ineffective [Unknown]
  - Eye irritation [Unknown]
  - Discomfort [Not Recovered/Not Resolved]

NARRATIVE: CASE EVENT DATE: 20230201
